FAERS Safety Report 25922092 (Version 1)
Quarter: 2025Q4

REPORT INFORMATION
  Report Type: Spontaneous
  Country: US (occurrence: US)
  Receive Date: 20251015
  Receipt Date: 20251015
  Transmission Date: 20260118
  Serious: No
  Sender: ROCHE
  Company Number: US-ROCHE-10000409686

PATIENT
  Sex: Female

DRUGS (1)
  1. ACTEMRA [Suspect]
     Active Substance: TOCILIZUMAB
     Indication: Rheumatoid arthritis
     Dosage: STRENGTH AND DOSE: 162MG/0.9M
     Route: 058
     Dates: start: 202502

REACTIONS (3)
  - Joint swelling [Unknown]
  - Arthralgia [Unknown]
  - Cyst [Unknown]
